FAERS Safety Report 12607773 (Version 1)
Quarter: 2016Q3

REPORT INFORMATION
  Report Type: Spontaneous
  Country: JP (occurrence: JP)
  Receive Date: 20160729
  Receipt Date: 20160729
  Transmission Date: 20161109
  Serious: Yes (Other)
  Sender: FDA-Public Use
  Company Number: JP-JNJFOC-20160725870

PATIENT

DRUGS (2)
  1. CANAGLU [Suspect]
     Active Substance: CANAGLIFLOZIN
     Indication: TYPE 1 DIABETES MELLITUS
     Route: 048
  2. INSULIN [Concomitant]
     Active Substance: INSULIN NOS
     Indication: TYPE 1 DIABETES MELLITUS
     Route: 065

REACTIONS (6)
  - Blood glucose fluctuation [Unknown]
  - Ketoacidosis [Unknown]
  - Weight decreased [Unknown]
  - Hypoglycaemia [Unknown]
  - Off label use [Unknown]
  - Product use issue [Unknown]
